FAERS Safety Report 9850277 (Version 1)
Quarter: 2014Q1

REPORT INFORMATION
  Report Type: Report from Study
  Country: FR (occurrence: FR)
  Receive Date: 20140128
  Receipt Date: 20140128
  Transmission Date: 20141002
  Serious: Yes (Hospitalization)
  Sender: FDA-Public Use
  Company Number: FR-GLAXOSMITHKLINE-B0959394B

PATIENT
  Age: 61 Year
  Sex: Female
  Weight: 66.5 kg

DRUGS (17)
  1. PAZOPANIB [Suspect]
     Indication: SALIVARY GLAND CANCER
     Dosage: 800MG PER DAY
     Route: 048
     Dates: start: 20131218
  2. OXYCONTIN [Concomitant]
     Dosage: 10MG PER DAY
  3. LYRICA [Concomitant]
     Dosage: 50MG PER DAY
  4. DAFALGAN [Concomitant]
     Dosage: 1G PER DAY
  5. CORTANCYL [Concomitant]
     Dosage: 20MG PER DAY
  6. ESOMEPRAZOLE [Concomitant]
     Dosage: 20MG PER DAY
  7. SEROPLEX [Concomitant]
     Dosage: 10MG PER DAY
  8. SPASFON LYOC [Concomitant]
     Dosage: 80MG PER DAY
     Route: 048
  9. MOVICOL [Concomitant]
     Indication: CONSTIPATION
  10. ZOLPIDEM [Concomitant]
     Dosage: 10MG PER DAY
  11. LYSANXIA [Concomitant]
  12. VOGALENE LYOC [Concomitant]
  13. IMODIUM [Concomitant]
  14. FUNGIZONE [Concomitant]
  15. INEXIUM [Concomitant]
  16. DICETEL [Concomitant]
  17. XYZALL [Concomitant]

REACTIONS (1)
  - Skin erosion [Not Recovered/Not Resolved]
